FAERS Safety Report 4846843-1 (Version None)
Quarter: 2005Q4

REPORT INFORMATION
  Report Type: 
  Country: None (occurrence: None)
  Receive Date: 20051207
  Receipt Date: 20051005
  Transmission Date: 20060501
  Serious: Yes (Other)
  Sender: FDA-Public Use
  Company Number: US-SP-2005-02041

PATIENT
  Age: 36 Year
  Sex: Female

DRUGS (4)
  1. TUBERSOL [Suspect]
     Indication: TUBERCULIN TEST
     Route: 023
     Dates: start: 20051004
  2. TUBERSOL [Suspect]
     Route: 023
     Dates: start: 20051004
  3. ZYRTEC [Concomitant]
  4. SINGULAIR [Concomitant]

REACTIONS (6)
  - CHEST PAIN [None]
  - DYSPNOEA [None]
  - ERYTHEMA [None]
  - HYPERSENSITIVITY [None]
  - INJECTION SITE URTICARIA [None]
  - WHEEZING [None]
